FAERS Safety Report 4686871-2 (Version None)
Quarter: 2005Q2

REPORT INFORMATION
  Report Type: 
  Country: None (occurrence: None)
  Receive Date: 20050608
  Receipt Date: 20050527
  Transmission Date: 20051028
  Serious: Yes (Death)
  Sender: FDA-Public Use
  Company Number: 150-20785-05040462

PATIENT
  Age: 15 Year
  Sex: Male

DRUGS (7)
  1. THALIDOMIDE - PHARMION (THALIDOMIDE) (50 MILLIGRAM, CAPSULES) [Suspect]
     Indication: EPENDYMOMA
     Dosage: 400 MG, DAILY, ORAL
     Route: 048
     Dates: start: 20030819, end: 20050416
  2. BACTRIM FORTE (BACTRIM) (TABLETS) [Concomitant]
  3. FORTUM (CEFTAZIDIME PENTAHYDRTE) [Concomitant]
  4. PROPAVAN (PROPIOMAZINE MALEATE) (TABLETS) [Concomitant]
  5. BETAPRED (BETAMETHASONE SODIUM PHOSPHATE)(TABLETS) [Concomitant]
  6. LANZO (LANSOPRAZOLE) (TABLETS) [Concomitant]
  7. MORPHINE [Concomitant]

REACTIONS (5)
  - EPENDYMOMA MALIGNANT [None]
  - MALIGNANT NEOPLASM PROGRESSION [None]
  - PNEUMONIA [None]
  - QUADRIPLEGIA [None]
  - RESPIRATORY FAILURE [None]
